FAERS Safety Report 4525012-9 (Version None)
Quarter: 2004Q4

REPORT INFORMATION
  Report Type: 
  Country: None (occurrence: None)
  Receive Date: 20041117
  Receipt Date: 20030908
  Transmission Date: 20050328
  Serious: Yes (Other)
  Sender: FDA-Public Use
  Company Number: C2003-2364.01

PATIENT
  Age: 63 Year
  Sex: Female

DRUGS (6)
  1. CLOZAPINE [Suspect]
     Indication: SCHIZOPHRENIA
     Dosage: 800 MG Q HS, ORAL
     Route: 048
     Dates: start: 20010101, end: 20030721
  2. LITHIUM CARBONATE [Concomitant]
  3. VENLAFAXINE ER [Concomitant]
  4. CLONAZEPAM [Concomitant]
  5. LEVOTHYROXINE SODIUM [Concomitant]
  6. OXYBUTYNIN [Concomitant]

REACTIONS (1)
  - WHITE BLOOD CELL COUNT DECREASED [None]
